FAERS Safety Report 6662556-8 (Version None)
Quarter: 2010Q1

REPORT INFORMATION
  Report Type: 
  Country: None (occurrence: None)
  Receive Date: 20100329
  Receipt Date: 20100323
  Transmission Date: 20100710
  Serious: Yes (Other)
  Sender: FDA-Public Use
  Company Number: 2010SP014314

PATIENT
  Age: 35 Year
  Sex: Male

DRUGS (4)
  1. REMERON [Suspect]
     Indication: DEPRESSION
     Dosage: 15 MG; PO
     Route: 048
     Dates: start: 20100226, end: 20100301
  2. ZOLOFT [Suspect]
     Indication: DRUG USE FOR UNKNOWN INDICATION
     Dosage: 100 MG; PO
     Route: 048
  3. RISPERDAL [Concomitant]
  4. MYSLEE [Concomitant]

REACTIONS (6)
  - APATHY [None]
  - CONDITION AGGRAVATED [None]
  - FEELING ABNORMAL [None]
  - INCORRECT DOSE ADMINISTERED [None]
  - IRRITABILITY [None]
  - SUICIDAL IDEATION [None]
